FAERS Safety Report 18520434 (Version 2)
Quarter: 2020Q4

REPORT INFORMATION
  Report Type: Report from Study
  Country: US (occurrence: US)
  Receive Date: 20201119
  Receipt Date: 20201130
  Transmission Date: 20210114
  Serious: No
  Sender: FDA-Public Use
  Company Number: NVSC2020US301389

PATIENT
  Age: 51 Year
  Sex: Female

DRUGS (1)
  1. ENTRESTO [Suspect]
     Active Substance: SACUBITRIL\VALSARTAN
     Indication: PRODUCT USED FOR UNKNOWN INDICATION
     Dosage: 50 MG, BID, (24/26MG)
     Route: 048
     Dates: start: 20201006

REACTIONS (13)
  - Cough [Not Recovered/Not Resolved]
  - Poor quality sleep [Unknown]
  - Chest pain [Unknown]
  - Dyspnoea [Not Recovered/Not Resolved]
  - Inappropriate schedule of product administration [Unknown]
  - Product dose omission issue [Unknown]
  - Memory impairment [Unknown]
  - Dizziness [Unknown]
  - Confusional state [Unknown]
  - Gait disturbance [Unknown]
  - Feeling abnormal [Unknown]
  - Decreased activity [Unknown]
  - Decreased appetite [Unknown]

NARRATIVE: CASE EVENT DATE: 202010
